FAERS Safety Report 5826676-X (Version None)
Quarter: 2008Q3

REPORT INFORMATION
  Report Type: 
  Country: None (occurrence: None)
  Receive Date: 20080730
  Receipt Date: 20080718
  Transmission Date: 20090109
  Serious: Yes (Life-Threatening, Hospitalization)
  Sender: FDA-Public Use
  Company Number: FR-WYE-H05187308

PATIENT
  Age: 55 Year
  Sex: Male

DRUGS (1)
  1. CORDARONE [Suspect]
     Indication: ATRIAL FIBRILLATION
     Dosage: DOSE AND FREQUENCY NOT SPECIFIED
     Route: 042
     Dates: start: 20080419, end: 20080502

REACTIONS (3)
  - ACUTE RESPIRATORY DISTRESS SYNDROME [None]
  - ALVEOLITIS ALLERGIC [None]
  - PLEURAL EFFUSION [None]
